FAERS Safety Report 18106898 (Version 4)
Quarter: 2020Q4

REPORT INFORMATION
  Report Type: Report from Study
  Country: CA (occurrence: CA)
  Receive Date: 20200804
  Receipt Date: 20201111
  Transmission Date: 20210113
  Serious: Yes (Hospitalization, Other)
  Sender: FDA-Public Use
  Company Number: NVSC2020CA119657

PATIENT
  Age: 84 Year
  Sex: Male

DRUGS (8)
  1. SANDOZ-METFORMIN [Concomitant]
     Indication: PRODUCT USED FOR UNKNOWN INDICATION
     Dosage: 1 DF, BID
     Route: 048
  2. OTEZLA [Concomitant]
     Active Substance: APREMILAST
     Indication: PRODUCT USED FOR UNKNOWN INDICATION
     Dosage: UNK
     Route: 065
  3. SANDOZ-MIRTAZAPINE [Concomitant]
     Indication: PRODUCT USED FOR UNKNOWN INDICATION
     Dosage: 1 DF, QD
     Route: 065
  4. METHOTREXATE. [Concomitant]
     Active Substance: METHOTREXATE
     Indication: PRODUCT USED FOR UNKNOWN INDICATION
     Dosage: UNK
     Route: 065
  5. CYCLOSPORINE. [Concomitant]
     Active Substance: CYCLOSPORINE
     Indication: PRODUCT USED FOR UNKNOWN INDICATION
     Dosage: UNK
     Route: 065
  6. ACITRETIN. [Concomitant]
     Active Substance: ACITRETIN
     Indication: PRODUCT USED FOR UNKNOWN INDICATION
     Dosage: UNK
     Route: 065
  7. COSENTYX [Suspect]
     Active Substance: SECUKINUMAB
     Indication: PSORIASIS
     Dosage: 300 MG, QMO
     Route: 058
     Dates: start: 20200108
  8. COSENTYX [Suspect]
     Active Substance: SECUKINUMAB
     Dosage: 300 MG, QMO
     Route: 058
     Dates: start: 2020

REACTIONS (15)
  - Haemorrhoids [Unknown]
  - Constipation [Unknown]
  - Abdominal pain upper [Unknown]
  - Weight decreased [Unknown]
  - Product dose omission issue [Unknown]
  - Crohn^s disease [Unknown]
  - Diarrhoea [Unknown]
  - Nasal congestion [Unknown]
  - Gastrointestinal inflammation [Unknown]
  - Therapeutic product effect incomplete [Unknown]
  - Gastrointestinal disorder [Unknown]
  - Malaise [Unknown]
  - Diverticulitis [Unknown]
  - Rectal discharge [Unknown]
  - Pain [Unknown]

NARRATIVE: CASE EVENT DATE: 202007
